FAERS Safety Report 23636986 (Version 3)
Quarter: 2024Q2

REPORT INFORMATION
  Report Type: Report from Study
  Country: US (occurrence: US)
  Receive Date: 20240315
  Receipt Date: 20240416
  Transmission Date: 20240716
  Serious: Yes (Other)
  Sender: FDA-Public Use
  Company Number: US-JNJFOC-20240303975

PATIENT
  Age: 17 Year
  Sex: Male

DRUGS (2)
  1. STELARA [Suspect]
     Active Substance: USTEKINUMAB
     Indication: Colitis ulcerative
     Dosage: INFUSION ON 03/JAN/2024
     Route: 058
  2. STELARA [Suspect]
     Active Substance: USTEKINUMAB
     Indication: Crohn^s disease

REACTIONS (6)
  - Colitis ulcerative [Unknown]
  - Device issue [Unknown]
  - Product dose omission issue [Unknown]
  - Inappropriate schedule of product administration [Unknown]
  - Off label use [Unknown]
  - Syringe issue [Unknown]

NARRATIVE: CASE EVENT DATE: 20240201
